FAERS Safety Report 24997096 (Version 1)
Quarter: 2025Q1

REPORT INFORMATION
  Report Type: Spontaneous
  Country: KR (occurrence: KR)
  Receive Date: 20250221
  Receipt Date: 20250221
  Transmission Date: 20250409
  Serious: Yes (Other)
  Sender: MERCK SHARP & DOHME LLC
  Company Number: KR-009507513-2254546

PATIENT
  Age: 39 Year
  Sex: Female

DRUGS (3)
  1. PEMBROLIZUMAB [Suspect]
     Active Substance: PEMBROLIZUMAB
     Dosage: 200 MG, DOSAGE INTERVAL 1 DAY, INTRAVENOUS MEDICATION
     Route: 050
     Dates: start: 20240109, end: 20240109
  2. CYCLOPHOSPHAMIDE [Suspect]
     Active Substance: CYCLOPHOSPHAMIDE
     Dosage: 948 MG, DOSAGE INTERVAL 1 DAY, INTRAVENOUS MEDICATION
     Route: 050
     Dates: start: 20240109, end: 20240109
  3. DOXORUBICIN HYDROCHLORIDE [Suspect]
     Active Substance: DOXORUBICIN HYDROCHLORIDE
     Dosage: 94.8 MG, DOSAGE INTERVAL 1 DAY, INTRAVENOUS MEDICATION
     Route: 050
     Dates: start: 20240109, end: 20240109

REACTIONS (2)
  - Leukopenia [Recovering/Resolving]
  - Pyrexia [Recovering/Resolving]

NARRATIVE: CASE EVENT DATE: 20240111
